FAERS Safety Report 21703260 (Version 1)
Quarter: 2022Q4

REPORT INFORMATION
  Report Type: Report from Study
  Country: US (occurrence: US)
  Receive Date: 20221209
  Receipt Date: 20221209
  Transmission Date: 20230113
  Serious: No
  Sender: FDA-Public Use
  Company Number: US-ACADIA PHARMACEUTICALS INC.-ACA-2022-PIM-004009

PATIENT
  Sex: Female

DRUGS (22)
  1. NUPLAZID [Suspect]
     Active Substance: PIMAVANSERIN TARTRATE
     Indication: Parkinson^s disease psychosis
     Dosage: 34 MILLIGRAM, QD
     Route: 048
     Dates: start: 20221025
  2. NUPLAZID [Suspect]
     Active Substance: PIMAVANSERIN TARTRATE
     Indication: Hallucination
     Dosage: 34 MILLIGRAM, QD
     Route: 048
     Dates: start: 2022
  3. NUPLAZID [Suspect]
     Active Substance: PIMAVANSERIN TARTRATE
     Indication: Delusion
  4. ACETAMINOPHEN [Concomitant]
     Active Substance: ACETAMINOPHEN
  5. ALOE VERA LEAF [Concomitant]
     Active Substance: ALOE VERA LEAF
     Dosage: 0.5-0.1%
  6. ANALGESIC [MENTHOL;METHYL SALICYLATE] [Concomitant]
     Dosage: 10-15%
  7. BIOFREEZE [Concomitant]
     Active Substance: MENTHOL
     Dosage: 10.5%
  8. CHEST RUB [Concomitant]
     Active Substance: CAMPHOR (NATURAL)\EUCALYPTUS OIL\MENTHOL
     Dosage: 4.5-1-2.%
  9. Cleansing clay [Concomitant]
  10. Cloth tape [Concomitant]
     Dosage: 1 TAPE
  11. EAR WAX REMOVAL [Concomitant]
     Active Substance: CARBAMIDE PEROXIDE
     Dosage: 6.5%
  12. HYDROGEN PEROXIDE [Concomitant]
     Active Substance: HYDROGEN PEROXIDE
     Dosage: 3%
  13. KETOCONAZOLE CRISTERS [Concomitant]
     Dosage: 2%
  14. LINZESS [Concomitant]
     Active Substance: LINACLOTIDE
     Dosage: 72 MICROGRAM
  15. MELATONIN [Concomitant]
     Active Substance: MELATONIN
  16. MUSCLE RUB [CAMPHOR;MENTHOL;METHYL SALICYLATE] [Concomitant]
     Dosage: 10-15%
  17. NYSTATIN [Concomitant]
     Active Substance: NYSTATIN
     Dosage: 100000UNIT/G
  18. ONDANSETRON [Concomitant]
     Active Substance: ONDANSETRON
     Dosage: 8 MILLIGRAM
  19. ORAL RELIEF [Concomitant]
     Active Substance: PHENOL
     Dosage: 1.4%
  20. PETROLEUM JELLY [Concomitant]
     Active Substance: PETROLATUM
  21. SKIN REPAIR [DIMETICONE] [Concomitant]
  22. TRAMADOL HCL [Concomitant]
     Active Substance: TRAMADOL HYDROCHLORIDE
     Dosage: 50 MILLIGRAM

REACTIONS (4)
  - Illness [Recovered/Resolved]
  - Vomiting [Recovered/Resolved]
  - Influenza like illness [Recovered/Resolved]
  - Lethargy [Recovered/Resolved]
